FAERS Safety Report 5731281-X (Version None)
Quarter: 2008Q2

REPORT INFORMATION
  Report Type: 
  Country: None (occurrence: None)
  Receive Date: 20080505
  Receipt Date: 20080420
  Transmission Date: 20081010
  Serious: Yes (Hospitalization)
  Sender: FDA-Public Use
  Company Number: STI-2008-01665

PATIENT
  Sex: Female

DRUGS (1)
  1. 516C CLINDOXYL GEL (CLINDAMYCIN + BENZOYL PEROXIDE) (BENZOYL PEROXIDE [Suspect]
     Indication: ACNE
     Dosage: TOPICAL
     Route: 061

REACTIONS (5)
  - DEFORMITY [None]
  - EYE OEDEMA [None]
  - FACE OEDEMA [None]
  - HYPERSENSITIVITY [None]
  - SPEECH DISORDER [None]
